FAERS Safety Report 6643850-3 (Version None)
Quarter: 2010Q1

REPORT INFORMATION
  Report Type: 
  Country: None (occurrence: None)
  Receive Date: 20100322
  Receipt Date: 20100312
  Transmission Date: 20100710
  Serious: Yes (Other)
  Sender: FDA-Public Use
  Company Number: BR-JNJFOC-20100304442

PATIENT
  Age: 34 Year
  Sex: Female
  Weight: 48.5 kg

DRUGS (6)
  1. ORTHO EVRA [Suspect]
     Indication: OFF LABEL USE
     Dosage: ETHINYL ESTRADIOL 0.6 MG/ NORELGESTROMIN 6 MG
     Route: 062
  2. ORTHO EVRA [Suspect]
     Indication: CONTRACEPTION
     Dosage: ETHINYL ESTRADIOL 0.6 MG/ NORELGESTROMIN 6 MG
     Route: 062
  3. BACTRIM [Interacting]
     Indication: URINARY TRACT INFECTION
     Route: 065
  4. AMOXICILLIN [Interacting]
     Indication: URINARY TRACT INFECTION
     Route: 065
  5. PROFLOXIN [Interacting]
     Indication: URINARY TRACT INFECTION
     Route: 065
  6. OTHER DRUGS (UNSPECIFIED) [Interacting]
     Indication: URINARY TRACT INFECTION
     Route: 065

REACTIONS (9)
  - ABDOMINAL DISTENSION [None]
  - DRUG INTERACTION [None]
  - DRUG PRESCRIBING ERROR [None]
  - HYPERSENSITIVITY [None]
  - INAPPROPRIATE SCHEDULE OF DRUG ADMINISTRATION [None]
  - OCCULT BLOOD [None]
  - OFF LABEL USE [None]
  - RASH [None]
  - URINARY TRACT INFECTION [None]
